FAERS Safety Report 5407663-2 (Version None)
Quarter: 2007Q3

REPORT INFORMATION
  Report Type: 
  Country: None (occurrence: None)
  Receive Date: 20070807
  Receipt Date: 20070726
  Transmission Date: 20080115
  Serious: Yes (Other)
  Sender: FDA-Public Use
  Company Number: CH-PFIZER INC-2007055512

PATIENT
  Sex: Male

DRUGS (10)
  1. NORVASC [Suspect]
     Indication: HYPERTENSION
     Route: 048
  2. ATENOLOL [Concomitant]
  3. FUROSEMIDE [Concomitant]
  4. METOLAZONE [Concomitant]
  5. ASPIRIN [Concomitant]
  6. CLOPIDOGREL [Concomitant]
  7. CALCIUM ACETATE [Concomitant]
  8. CALCITRIOL [Concomitant]
  9. ALLOPURINOL [Concomitant]
  10. EPOGEN [Concomitant]

REACTIONS (3)
  - DERMATITIS BULLOUS [None]
  - HYPERPARATHYROIDISM [None]
  - PSEUDOPORPHYRIA [None]
